FAERS Safety Report 4862835-0 (Version None)
Quarter: 2005Q4

REPORT INFORMATION
  Report Type: 
  Country: None (occurrence: None)
  Receive Date: 20051221
  Receipt Date: 20050920
  Transmission Date: 20060501
  Serious: Yes (Hospitalization)
  Sender: FDA-Public Use
  Company Number: DE-BRISTOL-MYERS SQUIBB COMPANY-13117114

PATIENT
  Age: 51 Year
  Sex: Female
  Weight: 89 kg

DRUGS (5)
  1. CYCLOPHOSPHAMIDE [Suspect]
     Indication: BREAST CANCER
     Route: 042
     Dates: start: 20050907, end: 20050907
  2. TAXOL [Suspect]
     Indication: BREAST CANCER
     Route: 042
     Dates: start: 20050720, end: 20050720
  3. EPIRUBICIN [Suspect]
     Indication: BREAST CANCER
     Route: 042
     Dates: start: 20050608, end: 20050608
  4. NEORECORMON [Concomitant]
     Dosage: DOSE UNIT = IE
     Route: 058
     Dates: start: 20050907, end: 20050921
  5. GRANOCYTE [Concomitant]
     Route: 058
     Dates: start: 20050909, end: 20050917

REACTIONS (4)
  - HAEMOGLOBIN DECREASED [None]
  - IIIRD NERVE PARALYSIS [None]
  - PLATELET COUNT DECREASED [None]
  - WHITE BLOOD CELL COUNT DECREASED [None]
